FAERS Safety Report 8950237 (Version 1)
Quarter: 2012Q4

REPORT INFORMATION
  Report Type: 
  Country: US (occurrence: US)
  Receive Date: 20121205
  Receipt Date: 20121205
  Transmission Date: 20130627
  Serious: No
  Sender: FDA-Public Use
  Company Number: US-ASTELLAS-2012US000028

PATIENT
  Age: 65 Year
  Sex: Female

DRUGS (2)
  1. TARCEVA [Suspect]
     Indication: BREAST CANCER METASTATIC
     Dosage: 150 mg, UID/QD
     Route: 048
     Dates: start: 2007, end: 2007
  2. TARCEVA [Suspect]
     Indication: MALIGNANT PERITONEAL NEOPLASM
     Dosage: 75 mg, bid
     Route: 048
     Dates: start: 2008

REACTIONS (6)
  - Off label use [Unknown]
  - Skin discolouration [Unknown]
  - Rash papular [Unknown]
  - Diarrhoea [Recovering/Resolving]
  - Dry skin [Unknown]
  - Onychoclasis [Unknown]
